FAERS Safety Report 4992224-X (Version None)
Quarter: 2006Q2

REPORT INFORMATION
  Report Type: 
  Country: None (occurrence: None)
  Receive Date: 20060502
  Receipt Date: 20060417
  Transmission Date: 20061013
  Serious: Yes (Death, Life-Threatening)
  Sender: FDA-Public Use
  Company Number: 2006-00700

PATIENT
  Age: 64 Year
  Sex: Male
  Weight: 51.7 kg

DRUGS (2)
  1. VELCADE [Suspect]
     Indication: METASTATIC SQUAMOUS CELL CARCINOMA
     Dosage: 1.30 MG/M2, IV BOLUS
     Route: 040
     Dates: start: 20060306, end: 20060316
  2. IRINOTECAN HCL [Suspect]
     Indication: METASTATIC SQUAMOUS CELL CARCINOMA
     Dosage: 125.00 MG/M2, INTRAVENOUS
     Route: 042
     Dates: start: 20060306, end: 20060313

REACTIONS (6)
  - DEHYDRATION [None]
  - DIARRHOEA [None]
  - LARYNGEAL CANCER [None]
  - MALIGNANT NEOPLASM PROGRESSION [None]
  - REFUSAL OF TREATMENT BY PATIENT [None]
  - SQUAMOUS CELL CARCINOMA [None]
